FAERS Safety Report 18219939 (Version 1)
Quarter: 2020Q3

REPORT INFORMATION
  Report Type: Other
  Country: CN (occurrence: CN)
  Receive Date: 20200902
  Receipt Date: 20200902
  Transmission Date: 20201103
  Serious: Yes (Other)
  Sender: FDA-Public Use
  Company Number: CN-ROCHE-2666991

PATIENT
  Age: 34 Month

DRUGS (3)
  1. CYCLOSPORINE. [Suspect]
     Active Substance: CYCLOSPORINE
     Indication: PROPHYLAXIS AGAINST GRAFT VERSUS HOST DISEASE
     Dosage: 2.5 MG/KG ONCE IN 12 HOUR INTRAVENOUS FROM DAY? 1),
     Route: 042
  2. METHOTREXATE. [Suspect]
     Active Substance: METHOTREXATE
     Indication: PROPHYLAXIS AGAINST GRAFT VERSUS HOST DISEASE
     Dosage: 15 MG/M2 IV ON DAY + 1, 10 MG/M2 ON DAYS + 3, + 6, AND + 11
     Route: 042
  3. MYCOPHENOLATE MOFETIL. [Suspect]
     Active Substance: MYCOPHENOLATE MOFETIL
     Indication: PROPHYLAXIS AGAINST GRAFT VERSUS HOST DISEASE
     Dosage: 600 MG/M2/DAY BID PO FROM DAY + 1
     Route: 065

REACTIONS (5)
  - Sepsis [Unknown]
  - Pericardial haemorrhage [Unknown]
  - Cytomegalovirus viraemia [Unknown]
  - Pancytopenia [Unknown]
  - Gastroenteritis rotavirus [Unknown]
